FAERS Safety Report 23305060 (Version 2)
Quarter: 2023Q4

REPORT INFORMATION
  Report Type: Spontaneous
  Country: DE (occurrence: DE)
  Receive Date: 20231218
  Receipt Date: 20231227
  Transmission Date: 20240110
  Serious: Yes (Life-Threatening, Disabling, Other)
  Sender: FDA-Public Use
  Company Number: None

PATIENT
  Age: 12 Year
  Sex: Male
  Weight: 35 kg

DRUGS (1)
  1. SAIZEN [Suspect]
     Active Substance: SOMATROPIN
     Indication: Growth hormone deficiency
     Dosage: LASTLY 1.1MG
     Route: 058
     Dates: start: 20170306, end: 20220405

REACTIONS (1)
  - Intracranial germ cell tumour [Not Recovered/Not Resolved]

NARRATIVE: CASE EVENT DATE: 20230901
